FAERS Safety Report 6766513-2 (Version None)
Quarter: 2010Q2

REPORT INFORMATION
  Report Type: 
  Country: None (occurrence: None)
  Receive Date: 20100611
  Receipt Date: 20100604
  Transmission Date: 20101027
  Serious: Yes (Life-Threatening)
  Sender: FDA-Public Use
  Company Number: JP-BAYER-201012802BYL

PATIENT
  Age: 58 Year
  Sex: Female

DRUGS (2)
  1. AVELOX [Suspect]
     Indication: PNEUMONIA
     Dosage: UNIT DOSE: 400 MG
     Route: 048
     Dates: start: 20100501, end: 20100503
  2. CRAVIT [Suspect]
     Indication: PNEUMONIA
     Route: 048
     Dates: start: 20100419, end: 20100423

REACTIONS (1)
  - INTERSTITIAL LUNG DISEASE [None]
